FAERS Safety Report 11610169 (Version 3)
Quarter: 2016Q1

REPORT INFORMATION
  Report Type: Report from Study
  Country: BR (occurrence: BR)
  Receive Date: 20151008
  Receipt Date: 20160103
  Transmission Date: 20160525
  Serious: Yes (Other)
  Sender: FDA-Public Use
  Company Number: BR-ROCHE-1643278

PATIENT
  Sex: Male
  Weight: 55 kg

DRUGS (4)
  1. MABTHERA [Suspect]
     Active Substance: RITUXIMAB
     Indication: RHEUMATOID ARTHRITIS
     Dosage: ON 30/AUG/2013, HE HAD LAST INFUSION OF RITUXIMAB? ON 15/AUG/2013, HE HAD LATEST INFUSION.
     Route: 042
     Dates: start: 20100301
  2. OMEPRAZOLE. [Concomitant]
     Active Substance: OMEPRAZOLE
  3. METICORTEN [Concomitant]
     Active Substance: PREDNISONE
     Indication: ARTHRITIS
     Route: 065
  4. DIPROSPAN [Concomitant]
     Active Substance: BETAMETHASONE DIPROPIONATE\BETAMETHASONE SODIUM PHOSPHATE
     Indication: PAIN
     Dosage: AS REQUIRED
     Route: 065

REACTIONS (1)
  - Hepatitis A [Not Recovered/Not Resolved]
